FAERS Safety Report 9961091 (Version 1)
Quarter: 2014Q1

REPORT INFORMATION
  Report Type: Report from Study
  Country: US (occurrence: US)
  Receive Date: 20140305
  Receipt Date: 20140305
  Transmission Date: 20141002
  Serious: No
  Sender: FDA-Public Use
  Company Number: US-ABBVIE-13P-163-1108985-00

PATIENT
  Age: 25 Year
  Sex: Female

DRUGS (6)
  1. HUMIRA [Suspect]
     Indication: CROHN^S DISEASE
     Dates: start: 20130525, end: 20130608
  2. HUMIRA [Suspect]
     Dates: start: 20130608
  3. TYLENOL [Concomitant]
     Indication: ABDOMINAL PAIN UPPER
  4. PRESCRIPTION [Concomitant]
     Indication: ABDOMINAL PAIN UPPER
  5. PRESCRIPTION [Concomitant]
     Indication: MUSCLE SPASMS
  6. VICODIN [Concomitant]
     Indication: ARTHRALGIA

REACTIONS (5)
  - Breast pain [Not Recovered/Not Resolved]
  - Injection site pain [Not Recovered/Not Resolved]
  - Injection site pain [Not Recovered/Not Resolved]
  - Scab [Not Recovered/Not Resolved]
  - Erythema [Not Recovered/Not Resolved]
